FAERS Safety Report 6664681-4 (Version None)
Quarter: 2010Q1

REPORT INFORMATION
  Report Type: 
  Country: None (occurrence: None)
  Receive Date: 20100330
  Receipt Date: 20100223
  Transmission Date: 20100710
  Serious: Yes (Other)
  Sender: FDA-Public Use
  Company Number: 6057184

PATIENT

DRUGS (3)
  1. LEVOTHYROXINE SODIUM [Suspect]
     Indication: BASEDOW'S DISEASE
     Dosage: TRANSPLACENTAL
     Route: 064
  2. POTASSIUM IODIDE [Suspect]
     Indication: DRUG USE FOR UNKNOWN INDICATION
     Dosage: TRANSPLACENTAL
  3. METHIMAZOLE [Suspect]
     Indication: DRUG USE FOR UNKNOWN INDICATION
     Dosage: TRANSPLACENTAL
     Route: 064

REACTIONS (8)
  - AGITATION NEONATAL [None]
  - CAESAREAN SECTION [None]
  - FEEDING DISORDER NEONATAL [None]
  - HYPERTHYROIDISM [None]
  - MATERNAL DRUGS AFFECTING FOETUS [None]
  - SUPRAVENTRICULAR TACHYCARDIA [None]
  - TACHYCARDIA FOETAL [None]
  - WEIGHT DECREASED [None]
